FAERS Safety Report 7957614-1 (Version None)
Quarter: 2011Q4

REPORT INFORMATION
  Report Type: 
  Country: None (occurrence: None)
  Receive Date: 20111205
  Receipt Date: 20111121
  Transmission Date: 20120403
  Serious: Yes (Other)
  Sender: FDA-Public Use
  Company Number: PHHY2011CH85093

PATIENT
  Age: 49 Year
  Sex: Female
  Weight: 75 kg

DRUGS (1)
  1. GILENYA [Suspect]
     Indication: RELAPSING-REMITTING MULTIPLE SCLEROSIS
     Dosage: 0.5 MG, QD
     Route: 048
     Dates: start: 20110303, end: 20111012

REACTIONS (6)
  - SYNOVIAL CYST [None]
  - RESPIRATORY DISORDER [None]
  - LYMPHOPENIA [None]
  - NEURALGIA [None]
  - GASTROINTESTINAL DISORDER [None]
  - NERVE COMPRESSION [None]
